FAERS Safety Report 17004741 (Version 3)
Quarter: 2019Q4

REPORT INFORMATION
  Report Type: Spontaneous
  Country: US (occurrence: US)
  Receive Date: 20191107
  Receipt Date: 20191119
  Transmission Date: 20200122
  Serious: Yes (Life-Threatening, Other)
  Sender: FDA-Public Use
  Company Number: US-PFIZER INC-2019471196

PATIENT
  Age: 61 Year
  Sex: Female

DRUGS (4)
  1. CALTRATE WITH VITAMIN D [Suspect]
     Active Substance: CALCIUM CARBONATE\CHOLECALCIFEROL
     Dosage: UNK
  2. MULTIVITAMINS [Suspect]
     Active Substance: VITAMINS
     Dosage: UNK
  3. VIT D [Suspect]
     Active Substance: VITAMIN D NOS
     Dosage: 2000 IU, UNK
  4. TUMS [Suspect]
     Active Substance: CALCIUM CARBONATE
     Indication: DYSPEPSIA
     Dosage: 2 TABS DAILY

REACTIONS (1)
  - Milk-alkali syndrome [Unknown]
